FAERS Safety Report 8995327 (Version 2)
Quarter: 2013Q1

REPORT INFORMATION
  Report Type: Report from Study
  Country: FR (occurrence: FR)
  Receive Date: 20130103
  Receipt Date: 20130116
  Transmission Date: 20140127
  Serious: Yes (Hospitalization)
  Sender: FDA-Public Use
  Company Number: FR-ROCHE-1173692

PATIENT
  Age: 73 Year
  Sex: Female
  Weight: 54 kg

DRUGS (14)
  1. TRASTUZUMAB [Suspect]
     Indication: BREAST CANCER
     Dosage: DATE OF LAST DOSE PRIOR TO SAE: 16/NOV/2012
     Route: 042
     Dates: start: 20120713
  2. CARBOPLATIN [Suspect]
     Indication: BREAST CANCER
     Dosage: DATE OF LAST DOSE PRIOR TO SAE: 16/NOV/2012
     Route: 042
     Dates: start: 20120713
  3. DOCETAXEL [Suspect]
     Indication: BREAST CANCER
     Dosage: DATE OF LAST DOSE PRIOR TO SAE: 16/NOV/2012
     Route: 042
     Dates: start: 20120713
  4. ONDANSETRON [Concomitant]
     Route: 065
     Dates: start: 20120713
  5. GRANISETRON [Concomitant]
     Route: 065
     Dates: start: 20120713
  6. PREDNISONE [Concomitant]
     Route: 065
     Dates: start: 20120713
  7. INDAPAMIDE [Concomitant]
     Route: 065
     Dates: start: 20120921
  8. KALEORID [Concomitant]
     Route: 065
     Dates: start: 20121114
  9. ROSUVASTATIN [Concomitant]
     Route: 065
  10. KARDEGIC [Concomitant]
     Route: 065
  11. ONGLYZA [Concomitant]
     Route: 065
  12. TRUSOPT [Concomitant]
     Route: 065
  13. DUOTRAV [Concomitant]
  14. PLACEBO [Suspect]
     Indication: BREAST CANCER
     Dosage: DATE OF LAST DOSE PRIOR TO SAE: 16/NOV/2012
     Route: 042
     Dates: start: 20120713

REACTIONS (1)
  - Febrile bone marrow aplasia [Recovered/Resolved]
